FAERS Safety Report 20189302 (Version 2)
Quarter: 2022Q1

REPORT INFORMATION
  Report Type: Spontaneous
  Country: US (occurrence: US)
  Receive Date: 20211215
  Receipt Date: 20220104
  Transmission Date: 20220423
  Serious: Yes (Death, Life-Threatening, Hospitalization, Other)
  Sender: FDA-Public Use
  Company Number: US-MLMSERVICE-20211129-3245416-1

PATIENT
  Age: 28 Year
  Sex: Female

DRUGS (4)
  1. BACTERIOSTATIC SODIUM CHLORIDE [Suspect]
     Active Substance: SODIUM CHLORIDE
     Indication: Blood sodium decreased
     Dosage: 1L (154 MEQ/L)
     Route: 040
  2. CALCIUM CHLORIDE\DEXTROSE MONOHYDRATE\POTASSIUM CHLORIDE\SODIUM CHLORI [Suspect]
     Active Substance: CALCIUM CHLORIDE\DEXTROSE MONOHYDRATE\POTASSIUM CHLORIDE\SODIUM CHLORIDE\SODIUM LACTATE
     Indication: Blood sodium decreased
     Dosage: 125 ML, CYCLIC (ONCE EVERY HOUR)
  3. PHENERGAN [Concomitant]
     Active Substance: PROMETHAZINE HYDROCHLORIDE
     Indication: Nausea
     Dosage: UNK
  4. DEMEROL [Concomitant]
     Active Substance: MEPERIDINE HYDROCHLORIDE
     Indication: Pain
     Dosage: UNK

REACTIONS (5)
  - Seizure [Fatal]
  - Hyponatraemia [Fatal]
  - Brain death [Fatal]
  - Respiratory arrest [Fatal]
  - Hyponatraemic encephalopathy [Fatal]
